FAERS Safety Report 6832950-0 (Version None)
Quarter: 2010Q3

REPORT INFORMATION
  Report Type: 
  Country: None (occurrence: None)
  Receive Date: 20100712
  Receipt Date: 20070323
  Transmission Date: 20110219
  Serious: No
  Sender: FDA-Public Use
  Company Number: US-PFIZER INC-2007024316

PATIENT
  Age: 53 Year
  Sex: Male
  Weight: 69.4 kg

DRUGS (5)
  1. CHANTIX [Suspect]
     Indication: SMOKING CESSATION THERAPY
     Dates: start: 20070215
  2. OXYCONTIN [Concomitant]
  3. OXYCODONE HCL [Concomitant]
  4. MOTRIN [Concomitant]
  5. SOMA [Concomitant]

REACTIONS (1)
  - FLATULENCE [None]
